FAERS Safety Report 8801767 (Version 2)
Quarter: 2013Q2

REPORT INFORMATION
  Report Type: Spontaneous
  Country: DE (occurrence: CA)
  Receive Date: 20120921
  Receipt Date: 20130607
  Transmission Date: 20140414
  Serious: Yes (Death)
  Sender: FDA-Public Use
  Company Number: CA-FRI-1000038864

PATIENT
  Age: 87 Year
  Sex: Female

DRUGS (2)
  1. ROFLUMILAST [Suspect]
     Indication: CHRONIC OBSTRUCTIVE PULMONARY DISEASE
     Dosage: 0.5 DF
     Route: 048
     Dates: start: 20120607
  2. ROFLUMILAST [Suspect]
     Dosage: 500 MCG
     Route: 048

REACTIONS (4)
  - Death [Fatal]
  - Malaise [Unknown]
  - Constipation [Unknown]
  - Medication error [Not Recovered/Not Resolved]
